FAERS Safety Report 12455651 (Version 1)
Quarter: 2016Q2

REPORT INFORMATION
  Report Type: Spontaneous
  Country: US (occurrence: None)
  Receive Date: 20160609
  Receipt Date: 20160609
  Transmission Date: 20160815
  Serious: Yes (Life-Threatening, Hospitalization)
  Sender: FDA-Public Use
  Company Number: None

PATIENT
  Age: 58 Year
  Sex: Male
  Weight: 81.5 kg

DRUGS (1)
  1. RITUXIMAB [Suspect]
     Active Substance: RITUXIMAB
     Indication: B-CELL LYMPHOMA
     Route: 042
     Dates: start: 20151218, end: 20151218

REACTIONS (6)
  - Dysphagia [None]
  - Restlessness [None]
  - Anxiety [None]
  - Dyspnoea [None]
  - Anaphylactic reaction [None]
  - Chills [None]

NARRATIVE: CASE EVENT DATE: 20151218
